FAERS Safety Report 7289372-0 (Version None)
Quarter: 2011Q1

REPORT INFORMATION
  Report Type: 
  Country: None (occurrence: None)
  Receive Date: 20110211
  Receipt Date: 20101115
  Transmission Date: 20110831
  Serious: Yes (Death)
  Sender: FDA-Public Use
  Company Number: US-ABBOTT-10P-163-0688885-00

PATIENT

DRUGS (2)
  1. RITONAVIR [Suspect]
     Indication: HIV INFECTION
     Route: 048
     Dates: start: 20050428, end: 20050805
  2. ATAZANAVIR [Concomitant]
     Indication: HIV INFECTION
     Dates: start: 20050428, end: 20050805

REACTIONS (2)
  - RENAL FAILURE [None]
  - PNEUMONIA [None]
